FAERS Safety Report 22354319 (Version 2)
Quarter: 2023Q2

REPORT INFORMATION
  Report Type: Spontaneous
  Country: MX (occurrence: MX)
  Receive Date: 20230523
  Receipt Date: 20230525
  Transmission Date: 20230722
  Serious: Yes (Hospitalization, Other)
  Sender: FDA-Public Use
  Company Number: MX-GSKCCFAMERS-Case-01704759_AE-96226

PATIENT

DRUGS (4)
  1. FLUTICASONE FUROATE\VILANTEROL TRIFENATATE [Suspect]
     Active Substance: FLUTICASONE FUROATE\VILANTEROL TRIFENATATE
     Indication: Asthma
     Dosage: UNK
     Dates: start: 2019
  2. ALBUTEROL [Suspect]
     Active Substance: ALBUTEROL
     Indication: Product used for unknown indication
     Dosage: UNK
  3. METFORMIN [Concomitant]
     Active Substance: METFORMIN HYDROCHLORIDE
     Indication: Product used for unknown indication
     Dosage: UNK
  4. AMLODIPINE [Concomitant]
     Active Substance: AMLODIPINE BESYLATE
     Indication: Product used for unknown indication
     Dosage: UNK

REACTIONS (18)
  - Tongue neoplasm malignant stage unspecified [Unknown]
  - Swelling [Not Recovered/Not Resolved]
  - Extra dose administered [Unknown]
  - Tongue ulceration [Not Recovered/Not Resolved]
  - Glossodynia [Not Recovered/Not Resolved]
  - Oropharyngeal pain [Not Recovered/Not Resolved]
  - Oral discomfort [Not Recovered/Not Resolved]
  - Cheilitis [Unknown]
  - Mucosal inflammation [Unknown]
  - Herpes virus infection [Unknown]
  - Oral candidiasis [Unknown]
  - Pharyngeal disorder [Unknown]
  - Mouth swelling [Unknown]
  - Infection [Unknown]
  - Tongue discomfort [Unknown]
  - Fungal infection [Unknown]
  - Depression [Unknown]
  - Wrong technique in device usage process [Unknown]
